FAERS Safety Report 18123682 (Version 1)
Quarter: 2020Q3

REPORT INFORMATION
  Report Type: Report from Study
  Country: US (occurrence: US)
  Receive Date: 20200807
  Receipt Date: 20200807
  Transmission Date: 20201103
  Serious: No
  Sender: FDA-Public Use
  Company Number: US-AEGERION PHARMACEUTICAL, INC-AEGR004805

PATIENT
  Age: 9 Year
  Sex: Male

DRUGS (4)
  1. METRELEPTIN [Suspect]
     Active Substance: METRELEPTIN
     Dosage: 0.7 MG, QD
     Route: 065
     Dates: start: 20170306, end: 20170809
  2. ALBUTEROL                          /00139501/ [Concomitant]
     Active Substance: ALBUTEROL
     Indication: ASTHMA
     Dosage: 2.5 MG, PRN
     Route: 045
     Dates: start: 2012
  3. METRELEPTIN [Suspect]
     Active Substance: METRELEPTIN
     Indication: CONGENITAL GENERALISED LIPODYSTROPHY
     Dosage: 1.0 MG, QD
     Route: 065
     Dates: start: 20160701, end: 20170305
  4. METRELEPTIN [Suspect]
     Active Substance: METRELEPTIN
     Dosage: 0.6 MG, QD
     Route: 065
     Dates: start: 20170810

REACTIONS (1)
  - Gun shot wound [Recovered/Resolved]

NARRATIVE: CASE EVENT DATE: 20200323
